FAERS Safety Report 5370260-1 (Version None)
Quarter: 2007Q2

REPORT INFORMATION
  Report Type: 
  Country: None (occurrence: None)
  Receive Date: 20070625
  Receipt Date: 20070625
  Transmission Date: 20071010
  Serious: Yes (Life-Threatening, Hospitalization)
  Sender: FDA-Public Use
  Company Number: None

PATIENT
  Age: 79 Year
  Sex: Male
  Weight: 68.0396 kg

DRUGS (2)
  1. UROXATRAL [Suspect]
     Indication: PROSTATE EXAMINATION ABNORMAL
     Dosage: 1 TABLET DAILY MOUTH
     Route: 048
     Dates: start: 20070322, end: 20070408
  2. HYDROCHLOROTHIAZIDE [Concomitant]

REACTIONS (9)
  - ABASIA [None]
  - ARRHYTHMIA [None]
  - CHEST PAIN [None]
  - ILL-DEFINED DISORDER [None]
  - INFLUENZA LIKE ILLNESS [None]
  - MALAISE [None]
  - PHARYNGOLARYNGEAL PAIN [None]
  - PNEUMONIA [None]
  - VISION BLURRED [None]
